FAERS Safety Report 12260983 (Version 1)
Quarter: 2016Q2

REPORT INFORMATION
  Report Type: Spontaneous
  Country: US (occurrence: None)
  Receive Date: 20160412
  Receipt Date: 20160412
  Transmission Date: 20160815
  Serious: No
  Sender: FDA-Public Use
  Company Number: None

PATIENT
  Age: 74 Year
  Sex: Female

DRUGS (1)
  1. CLONAZEPAM 0.5 MG INTES PHARMACEUTICAL LIMITED [Suspect]
     Active Substance: CLONAZEPAM
     Indication: THERAPY CESSATION
     Dosage: 54 DAYS
     Route: 048
     Dates: start: 201604

REACTIONS (2)
  - Muscular weakness [None]
  - Hyperhidrosis [None]

NARRATIVE: CASE EVENT DATE: 201604
